FAERS Safety Report 5310841-4 (Version None)
Quarter: 2007Q2

REPORT INFORMATION
  Report Type: 
  Country: None (occurrence: None)
  Receive Date: 20070428
  Receipt Date: 20070423
  Transmission Date: 20071010
  Serious: Yes (Death, Other)
  Sender: FDA-Public Use
  Company Number: FR-PFIZER INC-2004070905

PATIENT
  Age: 67 Year
  Sex: Female
  Weight: 87 kg

DRUGS (8)
  1. ATARAX [Suspect]
     Indication: ILL-DEFINED DISORDER
     Dosage: TEXT:UNKNOWN
     Route: 065
  2. TAHOR [Suspect]
     Indication: ILL-DEFINED DISORDER
     Dosage: DAILY DOSE:10MG
     Route: 048
  3. SULPIRIDE [Suspect]
     Indication: ILL-DEFINED DISORDER
     Dosage: TEXT:UNKNOWN
     Route: 065
  4. VALACYCLOVIR HCL [Suspect]
     Indication: ILL-DEFINED DISORDER
     Dosage: TEXT:UNKNOWN
     Route: 048
     Dates: start: 20040323, end: 20040323
  5. ANAFRANIL [Suspect]
     Indication: ILL-DEFINED DISORDER
     Dosage: TEXT:UNKNOWN
     Route: 048
  6. HAVLANE [Suspect]
     Indication: ILL-DEFINED DISORDER
     Dosage: TEXT:UNKNOWN
     Route: 048
  7. SULPIRIDE [Suspect]
     Dates: end: 20040323
  8. ALDACTAZINE [Concomitant]
     Route: 065

REACTIONS (2)
  - HERPES DERMATITIS [None]
  - VENTRICULAR TACHYCARDIA [None]
